FAERS Safety Report 7586650-2 (Version None)
Quarter: 2011Q3

REPORT INFORMATION
  Report Type: 
  Country: None (occurrence: None)
  Receive Date: 20110701
  Receipt Date: 20110620
  Transmission Date: 20111222
  Serious: Yes (Other)
  Sender: FDA-Public Use
  Company Number: US-ELI_LILLY_AND_COMPANY-US201106007105

PATIENT
  Sex: Female

DRUGS (3)
  1. HUMALOG [Suspect]
     Indication: DIABETES MELLITUS
     Dosage: 30 U, TID
     Dates: start: 20100401
  2. LANTUS [Concomitant]
     Dosage: UNK
  3. HUMALOG [Suspect]
     Dosage: 30 U, TID
     Dates: start: 20100401

REACTIONS (1)
  - BLINDNESS [None]
